FAERS Safety Report 8576061-5 (Version None)
Quarter: 2012Q3

REPORT INFORMATION
  Report Type: 
  Country: None (occurrence: None)
  Receive Date: 20120807
  Receipt Date: 20120420
  Transmission Date: 20120928
  Serious: No
  Sender: FDA-Public Use
  Company Number: US-FOUGERA-2012FO001075

PATIENT
  Sex: Female

DRUGS (1)
  1. LIDOCAINE [Suspect]
     Indication: ANAL FISSURE
     Route: 061
     Dates: start: 20120420

REACTIONS (2)
  - APPLICATION SITE PAIN [None]
  - OFF LABEL USE [None]
